FAERS Safety Report 11202816 (Version 2)
Quarter: 2015Q3

REPORT INFORMATION
  Report Type: Spontaneous
  Country: CA (occurrence: CA)
  Receive Date: 20150619
  Receipt Date: 20150708
  Transmission Date: 20151125
  Serious: Yes (Death)
  Sender: FDA-Public Use
  Company Number: CA-009507513-1506CAN007306

PATIENT
  Age: 61 Year
  Sex: Male

DRUGS (5)
  1. TEMODAL [Suspect]
     Active Substance: TEMOZOLOMIDE
     Indication: GLIOBLASTOMA
     Dosage: 290-390MG, DAILY X 5 DAYS/CYCLE
     Route: 048
     Dates: start: 20140626
  2. TEMODAL [Suspect]
     Active Substance: TEMOZOLOMIDE
     Indication: GLIOBLASTOMA
     Dosage: 290-390MG, DAILY X 5 DAYS/CYCLE
     Route: 048
     Dates: start: 20140626
  3. TEMODAL [Suspect]
     Active Substance: TEMOZOLOMIDE
     Indication: GLIOBLASTOMA
     Dosage: 290-390MG, DAILY X 5 DAYS/CYCLE
     Route: 048
     Dates: start: 20140626
  4. TEMODAL [Suspect]
     Active Substance: TEMOZOLOMIDE
     Indication: GLIOBLASTOMA
     Dosage: 290-390MG, DAILY X 5 DAYS/CYCLE
     Route: 048
     Dates: start: 20140626
  5. TEMODAL [Suspect]
     Active Substance: TEMOZOLOMIDE
     Indication: GLIOBLASTOMA
     Dosage: 290-390MG, DAILY X 5 DAYS/CYCLE
     Route: 048
     Dates: start: 20140626

REACTIONS (1)
  - Death [Fatal]

NARRATIVE: CASE EVENT DATE: 20150408
